FAERS Safety Report 6683581-7 (Version None)
Quarter: 2010Q2

REPORT INFORMATION
  Report Type: 
  Country: None (occurrence: None)
  Receive Date: 20100413
  Receipt Date: 20100330
  Transmission Date: 20101027
  Serious: Yes (Death, Life-Threatening)
  Sender: FDA-Public Use
  Company Number: 008918

PATIENT
  Age: 70 Year
  Sex: Male
  Weight: 70 kg

DRUGS (5)
  1. BUSULFEX [Suspect]
     Indication: STEM CELL TRANSPLANT
     Dosage: 0.8 MG/KG,QID
     Route: 042
     Dates: start: 20100131, end: 20100201
  2. ATG (ANTILYMPHOCYTE IMMUNOGLOBULAN (HORSE) [Concomitant]
  3. METHOTREXATE SODIUM [Concomitant]
  4. CYCLOSPORINE [Concomitant]
  5. FLUDARABINE PHOSPHATE [Concomitant]

REACTIONS (7)
  - CARDIOPULMONARY FAILURE [None]
  - DIALYSIS [None]
  - HYPERBILIRUBINAEMIA [None]
  - HYPOTENSION [None]
  - LIVER DISORDER [None]
  - PSEUDOMONAL SEPSIS [None]
  - RENAL FAILURE [None]
